FAERS Safety Report 4788297-X (Version None)
Quarter: 2005Q4

REPORT INFORMATION
  Report Type: 
  Country: None (occurrence: None)
  Receive Date: 20051003
  Receipt Date: 20050922
  Transmission Date: 20060501
  Serious: Yes (Life-Threatening, Hospitalization, Disabling)
  Sender: FDA-Public Use
  Company Number: FRWYE955006SEP05

PATIENT
  Age: 32 Year
  Sex: Female

DRUGS (1)
  1. MINIDRIL (LEVONORGESTREL/ETHINYL ESTRADIOL, TABLET, 0) LOT X05058 [Suspect]
     Indication: CONTRACEPTION
     Dosage: 1 TABLET 1X PER 1 DAY; ORAL
     Route: 048
     Dates: start: 20050501, end: 20050601

REACTIONS (14)
  - ACTIVATED PROTEIN C RESISTANCE [None]
  - ANXIETY [None]
  - CHEST PAIN [None]
  - COUGH [None]
  - DEEP VEIN THROMBOSIS [None]
  - DYSPNOEA EXERTIONAL [None]
  - ELECTROCARDIOGRAM T WAVE INVERSION [None]
  - FACTOR V LEIDEN MUTATION [None]
  - FIBRIN D DIMER INCREASED [None]
  - HAEMANGIOMA OF LIVER [None]
  - HYPERCOAGULATION [None]
  - PULMONARY EMBOLISM [None]
  - PULMONARY INFARCTION [None]
  - SYNCOPE [None]
